FAERS Safety Report 6683626-4 (Version None)
Quarter: 2010Q2

REPORT INFORMATION
  Report Type: 
  Country: None (occurrence: None)
  Receive Date: 20100416
  Receipt Date: 20100412
  Transmission Date: 20101027
  Serious: Yes (Hospitalization)
  Sender: FDA-Public Use
  Company Number: US-ASTRAZENECA-2007UW01957

PATIENT
  Age: 15556 Day
  Sex: Female
  Weight: 122.5 kg

DRUGS (40)
  1. SEROQUEL [Suspect]
     Indication: DEPRESSION
     Route: 048
     Dates: start: 20011202, end: 20030831
  2. SEROQUEL [Suspect]
     Indication: INSOMNIA
     Route: 048
     Dates: start: 20011202, end: 20030831
  3. SEROQUEL [Suspect]
     Dosage: 100 MG - 500 MG
     Route: 048
     Dates: start: 20011221, end: 20031013
  4. SEROQUEL [Suspect]
     Dosage: 100 MG - 500 MG
     Route: 048
     Dates: start: 20011221, end: 20031013
  5. SEROQUEL [Suspect]
     Route: 048
     Dates: start: 20031013
  6. SEROQUEL [Suspect]
     Route: 048
     Dates: start: 20031013
  7. SEROQUEL [Suspect]
     Route: 048
     Dates: start: 20040101
  8. SEROQUEL [Suspect]
     Route: 048
     Dates: start: 20040101
  9. SEROQUEL [Suspect]
     Route: 048
     Dates: start: 20041204
  10. SEROQUEL [Suspect]
     Route: 048
     Dates: start: 20041204
  11. PAXIL [Concomitant]
     Route: 048
     Dates: start: 20010101
  12. PAXIL [Concomitant]
     Route: 048
     Dates: start: 20020326
  13. EFFEXOR XR [Concomitant]
     Route: 048
     Dates: start: 20020211, end: 20020218
  14. EFFEXOR XR [Concomitant]
     Route: 048
     Dates: start: 20020218
  15. GLUCOPHAGE [Concomitant]
     Route: 048
     Dates: start: 20031013
  16. GLUCOPHAGE [Concomitant]
     Route: 048
     Dates: start: 20040213
  17. GLUCOPHAGE [Concomitant]
     Route: 048
     Dates: start: 20040303
  18. BEXTRA [Concomitant]
     Route: 048
  19. NEURONTIN [Concomitant]
     Route: 048
     Dates: start: 20040101
  20. BENADRYL [Concomitant]
     Route: 048
  21. ADVAIR DISKUS 250/50 [Concomitant]
     Dosage: 250 + 50 MCG TWICE DAILY
  22. AVANDIA [Concomitant]
     Route: 048
     Dates: start: 20040303
  23. AVANDIA [Concomitant]
     Route: 048
     Dates: start: 20040806
  24. SINGULAIR [Concomitant]
     Indication: PRURITUS
     Dates: start: 20040101
  25. CLARITIN [Concomitant]
     Route: 048
     Dates: start: 20040101
  26. ASPIRIN [Concomitant]
     Route: 048
  27. COREG [Concomitant]
     Route: 048
  28. REGLAN [Concomitant]
     Route: 048
  29. TRAMADOL HCL [Concomitant]
     Route: 048
  30. VITAMIN E [Concomitant]
     Route: 048
  31. VITAMIN B-12 [Concomitant]
  32. RANITIDINE HCL [Concomitant]
  33. PREDNISONE [Concomitant]
     Route: 048
  34. DISALCID [Concomitant]
     Route: 048
     Dates: start: 20031013
  35. HYDROXYZINE [Concomitant]
     Route: 048
     Dates: start: 20040806
  36. ALBUTEROL SULATE [Concomitant]
  37. NICOTINE [Concomitant]
     Dosage: 21 MG/24 HR ONCE DAILY
  38. LORAZEPAM [Concomitant]
     Route: 048
  39. OXYCODONE AND ACETAMINOPHEN [Concomitant]
     Route: 048
  40. PROPOXYPHENE NAPSYLATE AND ACETAMINOPHEN [Concomitant]

REACTIONS (7)
  - CHEST PAIN [None]
  - NEPHROLITHIASIS [None]
  - PERICARDIAL EFFUSION [None]
  - PULMONARY HYPERTENSION [None]
  - SEPSIS [None]
  - TYPE 2 DIABETES MELLITUS [None]
  - URINARY TRACT INFECTION [None]
